FAERS Safety Report 8997250 (Version 1)
Quarter: 2013Q1

REPORT INFORMATION
  Report Type: Spontaneous
  Country: US (occurrence: US)
  Receive Date: 20130104
  Receipt Date: 20130104
  Transmission Date: 20140127
  Serious: Yes (Other)
  Sender: FDA-Public Use
  Company Number: US-JNJFOC-20130100254

PATIENT
  Age: 63 Year
  Sex: Male
  Weight: 79.38 kg

DRUGS (4)
  1. XARELTO [Suspect]
     Indication: THROMBOSIS PROPHYLAXIS
     Dosage: 12 DAYS
     Route: 048
     Dates: start: 20121202, end: 20121207
  2. XARELTO [Suspect]
     Indication: KNEE ARTHROPLASTY
     Dosage: 12 DAYS
     Route: 048
     Dates: start: 20121202, end: 20121207
  3. PERCOCET [Concomitant]
     Indication: PAIN
     Dosage: THERAPY DATES 1-DEC-2012
     Route: 065
     Dates: start: 20121201
  4. LORTAB [Concomitant]
     Indication: PAIN
     Dosage: THERAPY DATE - 2-DEC-2012
     Route: 065
     Dates: start: 20101202

REACTIONS (1)
  - Dyspnoea [Recovered/Resolved]
